FAERS Safety Report 7501289-2 (Version None)
Quarter: 2011Q2

REPORT INFORMATION
  Report Type: 
  Country: None (occurrence: None)
  Receive Date: 20110524
  Receipt Date: 20110509
  Transmission Date: 20111010
  Serious: Yes (Hospitalization)
  Sender: FDA-Public Use
  Company Number: US-JNJFOC-20110503956

PATIENT
  Sex: Female
  Weight: 58.51 kg

DRUGS (2)
  1. HUMIRA [Suspect]
     Indication: CROHN'S DISEASE
     Dosage: IN .8 ML PEN
     Route: 058
     Dates: start: 20100701
  2. REMICADE [Suspect]
     Indication: CROHN'S DISEASE
     Route: 042

REACTIONS (7)
  - BLOOD UREA ABNORMAL [None]
  - BLOOD CREATININE ABNORMAL [None]
  - CARDIAC FAILURE CONGESTIVE [None]
  - THYROID NEOPLASM [None]
  - WEIGHT DECREASED [None]
  - BLOOD POTASSIUM DECREASED [None]
  - OESOPHAGEAL STENOSIS [None]
